FAERS Safety Report 9885463 (Version 2)
Quarter: 2014Q1

REPORT INFORMATION
  Report Type: Report from Study
  Country: US (occurrence: US)
  Receive Date: 20140210
  Receipt Date: 20140211
  Transmission Date: 20141002
  Serious: Yes (Hospitalization)
  Sender: FDA-Public Use
  Company Number: US-ABBVIE-14P-163-1196641-00

PATIENT
  Age: 43 Year
  Sex: Male

DRUGS (2)
  1. HUMIRA [Suspect]
     Indication: CROHN^S DISEASE
     Dates: start: 2010
  2. OVER THE COUNTER ALLERGY MEDICATION [Concomitant]
     Indication: HYPERSENSITIVITY

REACTIONS (7)
  - Intervertebral disc disorder [Recovered/Resolved]
  - Hypertension [Unknown]
  - Neck pain [Unknown]
  - Procedural pain [Unknown]
  - Injection site pain [Unknown]
  - Device issue [Unknown]
  - Drug dose omission [Unknown]
